FAERS Safety Report 14592208 (Version 2)
Quarter: 2018Q2

REPORT INFORMATION
  Report Type: Spontaneous
  Country: US (occurrence: US)
  Receive Date: 20180302
  Receipt Date: 20180425
  Transmission Date: 20180711
  Serious: Yes (Other)
  Sender: FDA-Public Use
  Company Number: US-009507513-1803USA000079

PATIENT
  Age: 11 Year
  Sex: Male

DRUGS (1)
  1. TRUSOPT [Suspect]
     Active Substance: DORZOLAMIDE HYDROCHLORIDE
     Indication: RETINOSCHISIS
     Dosage: 2 %, TID IN EACH EYE THREE TIMES A DAY
     Route: 061

REACTIONS (4)
  - Condition aggravated [Recovered/Resolved with Sequelae]
  - Off label use [Unknown]
  - Macular degeneration [Recovered/Resolved]
  - Paradoxical drug reaction [Recovered/Resolved with Sequelae]
